FAERS Safety Report 18611934 (Version 1)
Quarter: 2020Q4

REPORT INFORMATION
  Report Type: Spontaneous
  Country: US (occurrence: US)
  Receive Date: 20201214
  Receipt Date: 20201214
  Transmission Date: 20210114
  Serious: Yes (Hospitalization, Disabling)
  Sender: FDA-Public Use
  Company Number: None

PATIENT
  Age: 65 Year
  Sex: Female
  Weight: 69.75 kg

DRUGS (8)
  1. METOPROLOL TARTRATE 50MG STARTING DOSE TWO TABLETS TWICE A DAY WITH FO [Suspect]
     Active Substance: METOPROLOL TARTRATE
     Indication: HYPERTENSION
  2. VERAPAMIL [Concomitant]
     Active Substance: VERAPAMIL HYDROCHLORIDE
  3. METOPROLOL TARTRATE 50MG STARTING DOSE TWO TABLETS TWICE A DAY WITH FO [Suspect]
     Active Substance: METOPROLOL TARTRATE
     Indication: CARDIOMYOPATHY
  4. METOPROLOL TARTRATE 50MG STARTING DOSE TWO TABLETS TWICE A DAY WITH FO [Suspect]
     Active Substance: METOPROLOL TARTRATE
     Indication: ATRIAL FIBRILLATION
  5. ZOLPIDEM [Concomitant]
     Active Substance: ZOLPIDEM TARTRATE
  6. VITAMIN D3 [Concomitant]
     Active Substance: CHOLECALCIFEROL
  7. PEPCID [Concomitant]
     Active Substance: FAMOTIDINE
  8. E;LIQUIS [Concomitant]

REACTIONS (2)
  - Therapy change [None]
  - Adverse drug reaction [None]

NARRATIVE: CASE EVENT DATE: 20201203
